FAERS Safety Report 8166494-3 (Version None)
Quarter: 2012Q1

REPORT INFORMATION
  Report Type: 
  Country: None (occurrence: None)
  Receive Date: 20120227
  Receipt Date: 20110920
  Transmission Date: 20120608
  Serious: No
  Sender: FDA-Public Use
  Company Number: US-MYLANLABS-2011S1019560

PATIENT
  Age: 19 Year
  Sex: Female

DRUGS (2)
  1. CONTRACEPTIVE [Concomitant]
  2. AMNESTEEM [Suspect]
     Indication: ACNE
     Route: 048
     Dates: start: 20110825, end: 20110826

REACTIONS (3)
  - CHEST PAIN [None]
  - BACK PAIN [None]
  - CHAPPED LIPS [None]
